FAERS Safety Report 8951451 (Version 2)
Quarter: 2013Q1

REPORT INFORMATION
  Report Type: Spontaneous
  Country: GB (occurrence: None)
  Receive Date: 20121129
  Receipt Date: 20130328
  Transmission Date: 20140127
  Serious: Yes (Death, Other)
  Sender: FDA-Public Use
  Company Number: AUR-APL-2012-04998

PATIENT
  Age: 62 Year
  Sex: Male

DRUGS (3)
  1. SIMVASTATIN (SIMVASTATIN) [Suspect]
     Indication: BLOOD CHOLESTEROL INCREASED
     Dosage: (40 MG)
     Route: 048
     Dates: start: 201202, end: 201203
  2. MIRTAZAPINE (MIRTAZAPINE) [Concomitant]
  3. OLANZAPINE (OLANZAPINE) [Concomitant]

REACTIONS (2)
  - Depression [None]
  - Completed suicide [None]
